FAERS Safety Report 11567842 (Version 1)
Quarter: 2015Q3

REPORT INFORMATION
  Report Type: Spontaneous
  Country: US (occurrence: US)
  Receive Date: 20150916
  Receipt Date: 20150916
  Transmission Date: 20151125
  Serious: No
  Sender: FDA-Public Use
  Company Number: US-ELI_LILLY_AND_COMPANY-US200908000672

PATIENT
  Sex: Female

DRUGS (8)
  1. LEXAPRO [Concomitant]
     Active Substance: ESCITALOPRAM OXALATE
  2. VITAMINS NOS [Concomitant]
     Active Substance: VITAMINS
  3. OMEPRAZOLE. [Concomitant]
     Active Substance: OMEPRAZOLE
  4. FORTEO [Suspect]
     Active Substance: TERIPARATIDE
  5. SINGULAIR [Concomitant]
     Active Substance: MONTELUKAST SODIUM
  6. PREDNISONE. [Concomitant]
     Active Substance: PREDNISONE
  7. CRESTOR [Concomitant]
     Active Substance: ROSUVASTATIN CALCIUM
  8. ATIVAN [Concomitant]
     Active Substance: LORAZEPAM

REACTIONS (2)
  - Dizziness [Unknown]
  - Dyspnoea [Not Recovered/Not Resolved]
